FAERS Safety Report 8245671-7 (Version None)
Quarter: 2012Q1

REPORT INFORMATION
  Report Type: 
  Country: None (occurrence: None)
  Receive Date: 20120330
  Receipt Date: 20120321
  Transmission Date: 20120608
  Serious: Yes (Hospitalization)
  Sender: FDA-Public Use
  Company Number: US-BIOGENIDEC-2012BI004908

PATIENT
  Age: 41 Year
  Sex: Female

DRUGS (4)
  1. IMODIUM [Concomitant]
     Indication: CROHN'S DISEASE
  2. TYSABRI [Suspect]
     Indication: CROHN'S DISEASE
     Route: 042
     Dates: start: 20100707
  3. ZOLOFT [Concomitant]
     Indication: DEPRESSION
  4. VITAMIN D [Concomitant]

REACTIONS (1)
  - OVARIAN CYST [None]
